FAERS Safety Report 16305729 (Version 3)
Quarter: 2021Q4

REPORT INFORMATION
  Report Type: Report from Study
  Country: US (occurrence: US)
  Receive Date: 20190513
  Receipt Date: 20211203
  Transmission Date: 20220304
  Serious: Yes (Death, Life-Threatening, Hospitalization, Other)
  Sender: FDA-Public Use
  Company Number: US-BRISTOL-MYERS SQUIBB COMPANY-BMS-2019-042029

PATIENT
  Age: 57 Year
  Sex: Male
  Weight: 103.5 kg

DRUGS (14)
  1. NIVOLUMAB [Suspect]
     Active Substance: NIVOLUMAB
     Indication: Precursor B-lymphoblastic lymphoma
     Dosage: 480 MILLIGRAM
     Route: 042
     Dates: start: 20190127, end: 20190208
  2. IPILIMUMAB [Suspect]
     Active Substance: IPILIMUMAB
     Indication: Precursor B-lymphoblastic lymphoma
     Dosage: 1 MILLIGRAM/KILOGRAM (102MG)
     Route: 042
     Dates: start: 20190127, end: 20190127
  3. BLINATUMOMAB [Suspect]
     Active Substance: BLINATUMOMAB
     Indication: Precursor B-lymphoblastic lymphoma
     Dosage: CYCLE1 DAY1
     Route: 065
     Dates: start: 20190117
  4. BLINATUMOMAB [Suspect]
     Active Substance: BLINATUMOMAB
     Dosage: 9 MICROGRAM/DAY (651MG)
     Route: 042
     Dates: start: 20190127, end: 20190213
  5. ACYCLOVIR [Concomitant]
     Active Substance: ACYCLOVIR
     Indication: Product used for unknown indication
     Route: 065
  6. ATOVAQUONE [Concomitant]
     Active Substance: ATOVAQUONE
     Indication: Product used for unknown indication
     Route: 065
  7. CEFEPIME [Concomitant]
     Active Substance: CEFEPIME HYDROCHLORIDE
     Indication: Product used for unknown indication
     Route: 065
  8. ENOXAPARIN [Concomitant]
     Active Substance: ENOXAPARIN
     Indication: Product used for unknown indication
     Route: 065
  9. FUROSEMIDE [Concomitant]
     Active Substance: FUROSEMIDE
     Indication: Product used for unknown indication
     Route: 065
  10. IOHEXOL [Concomitant]
     Active Substance: IOHEXOL
     Indication: Product used for unknown indication
     Route: 065
  11. LEVOFLOXACIN [Concomitant]
     Active Substance: LEVOFLOXACIN
     Indication: Product used for unknown indication
     Route: 065
  12. METHYLPREDNISOLONE SODIUM SUCCINATE [Concomitant]
     Active Substance: METHYLPREDNISOLONE SODIUM SUCCINATE
     Indication: Product used for unknown indication
     Dosage: 2 MILLIGRAM/KILOGRAM
     Route: 065
  13. METOPROLOL TARTRATE [Concomitant]
     Active Substance: METOPROLOL TARTRATE
     Indication: Product used for unknown indication
     Route: 065
  14. SULFAMETHOXAZOLE AND TRIMETHOPRIM [Concomitant]
     Active Substance: SULFAMETHOXAZOLE\TRIMETHOPRIM
     Indication: Product used for unknown indication
     Route: 065

REACTIONS (4)
  - Pneumonitis [Fatal]
  - Hypoxia [Unknown]
  - Atrial fibrillation [Unknown]
  - Cholecystitis [Unknown]

NARRATIVE: CASE EVENT DATE: 20190212
